FAERS Safety Report 9171054 (Version 2)
Quarter: 2013Q1

REPORT INFORMATION
  Report Type: Spontaneous
  Country: CN (occurrence: None)
  Receive Date: 20130312
  Receipt Date: 20130319
  Transmission Date: 20140127
  Serious: Yes (Life-Threatening, Other)
  Sender: FDA-Public Use
  Company Number: 2013P1003066

PATIENT
  Sex: Female

DRUGS (2)
  1. CEFUROXIME [Suspect]
     Indication: PROCEDURAL SITE REACTION
     Route: 042
  2. ANESTHETIC [Concomitant]

REACTIONS (2)
  - Shock [None]
  - Coma [None]
